FAERS Safety Report 18930579 (Version 1)
Quarter: 2021Q1

REPORT INFORMATION
  Report Type: Spontaneous
  Country: MY (occurrence: MY)
  Receive Date: 20210224
  Receipt Date: 20210224
  Transmission Date: 20210420
  Serious: Yes (Other)
  Sender: FDA-Public Use
  Company Number: MY-LUPIN PHARMACEUTICALS INC.-2021-02245

PATIENT
  Age: 52 Year
  Sex: Male

DRUGS (8)
  1. IODOSORB [Suspect]
     Active Substance: CADEXOMER IODINE
     Indication: DIABETIC FOOT
     Dosage: UNK
     Route: 065
  2. HYPERGEL [Suspect]
     Active Substance: SODIUM CHLORIDE
     Indication: DIABETIC FOOT
     Dosage: UNK
     Route: 065
  3. PAPASE [Suspect]
     Active Substance: PAPAIN
     Indication: LOCALISED INFECTION
  4. ACTICOAT [Suspect]
     Active Substance: SILVER OXIDE
     Indication: DIABETIC FOOT
     Dosage: UNK
     Route: 065
  5. METRONIDAZOLE. [Suspect]
     Active Substance: METRONIDAZOLE
     Indication: DIABETIC FOOT
     Dosage: UNK
     Route: 065
  6. KALTOSTAT [CALCIUM ALGINATE;SODIUM ALGINATE] [Suspect]
     Active Substance: DEVICE
     Indication: DIABETIC FOOT
     Dosage: UNK
     Route: 065
  7. PAPASE [Suspect]
     Active Substance: PAPAIN
     Indication: DIABETIC FOOT
     Dosage: UNK
     Route: 065
  8. INTRASITE [CARMELLOSE] [Suspect]
     Active Substance: CARBOXYMETHYLCELLULOSE
     Indication: DIABETIC FOOT
     Dosage: UNK
     Route: 065

REACTIONS (1)
  - Drug ineffective [Unknown]
